FAERS Safety Report 10535479 (Version 2)
Quarter: 2014Q4

REPORT INFORMATION
  Report Type: Spontaneous
  Country: JP (occurrence: JP)
  Receive Date: 20141022
  Receipt Date: 20141022
  Transmission Date: 20150529
  Serious: Yes (Other)
  Sender: FDA-Public Use
  Company Number: JP-BAYER-2014-031695

PATIENT
  Age: 72 Year
  Sex: Male
  Weight: 65 kg

DRUGS (5)
  1. STIVARGA [Suspect]
     Active Substance: REGORAFENIB
     Indication: COLON CANCER
     Dosage: 40 MG, QD
     Route: 048
     Dates: start: 20140402
  2. STIVARGA [Suspect]
     Active Substance: REGORAFENIB
     Indication: COLON CANCER
     Dosage: 160 MG, QD
     Route: 048
     Dates: start: 20140219, end: 20140226
  3. STIVARGA [Suspect]
     Active Substance: REGORAFENIB
     Indication: COLON CANCER
     Dosage: 120 MG, QD
     Route: 048
     Dates: start: 20140305, end: 20140319
  4. PYDOXAL [Concomitant]
     Active Substance: PYRIDOXAL
     Indication: DRUG TOXICITY PROPHYLAXIS
     Dosage: DAILY DOSE 60 MG
     Route: 048
     Dates: start: 20140219
  5. HIRUDOID [Concomitant]
     Active Substance: GLYCOSAMINOGLYCANS
     Indication: DRUG TOXICITY PROPHYLAXIS
     Dosage: UNK
     Route: 061
     Dates: start: 20140219

REACTIONS (4)
  - Ascites [None]
  - Liver disorder [Recovering/Resolving]
  - Fibrin D dimer increased [Recovering/Resolving]
  - Platelet count decreased [Recovering/Resolving]

NARRATIVE: CASE EVENT DATE: 20140226
